FAERS Safety Report 9781405 (Version 1)
Quarter: 2013Q4

REPORT INFORMATION
  Report Type: Spontaneous
  Country: US (occurrence: None)
  Receive Date: 20131223
  Receipt Date: 20131223
  Transmission Date: 20140711
  Serious: Yes (Hospitalization)
  Sender: FDA-Public Use
  Company Number: None

PATIENT
  Age: 64 Year
  Sex: Male
  Weight: 110.7 kg

DRUGS (1)
  1. WARFARIN [Suspect]
     Dosage: MG  PO
     Route: 048
     Dates: start: 20131012

REACTIONS (1)
  - Haemoglobin decreased [None]
